FAERS Safety Report 5598585-5 (Version None)
Quarter: 2008Q1

REPORT INFORMATION
  Report Type: 
  Country: None (occurrence: None)
  Receive Date: 20080122
  Receipt Date: 20080114
  Transmission Date: 20080703
  Serious: Yes (Other)
  Sender: FDA-Public Use
  Company Number: HU-SANOFI-SYNTHELABO-A01200800445

PATIENT
  Sex: Female

DRUGS (19)
  1. SCUTAMIL-C [Concomitant]
     Indication: DRUG USE FOR UNKNOWN INDICATION
     Dosage: OCCASIONALLY
     Route: 065
  2. MYDETON [Concomitant]
     Indication: DRUG USE FOR UNKNOWN INDICATION
     Dosage: OCCASIONALLY
     Route: 065
  3. RHEOSOLON [Concomitant]
     Indication: DRUG USE FOR UNKNOWN INDICATION
     Dosage: OCCASIONALLY
     Route: 065
  4. PROPAFENON [Suspect]
     Indication: ATRIAL FIBRILLATION
     Route: 048
  5. KALIUM R [Concomitant]
     Indication: DRUG USE FOR UNKNOWN INDICATION
     Dosage: THREE TIMES WEEKLY
     Route: 048
  6. FUROSEMIDE [Concomitant]
     Indication: DRUG USE FOR UNKNOWN INDICATION
     Dosage: THREE TIMES WEEKLY
     Route: 048
  7. GINGIUM [Concomitant]
     Indication: DRUG USE FOR UNKNOWN INDICATION
     Route: 048
  8. CONDROSULF [Concomitant]
     Indication: OSTEOARTHRITIS
     Dosage: UNK
     Route: 048
  9. GLUCOZAMIN [Concomitant]
     Indication: OSTEOARTHRITIS
     Dosage: UNK
     Route: 048
  10. MEDAZEPAM [Concomitant]
     Indication: DRUG USE FOR UNKNOWN INDICATION
     Route: 048
  11. HALIDOR [Concomitant]
     Indication: DRUG USE FOR UNKNOWN INDICATION
     Route: 048
  12. ERGOTOP [Concomitant]
     Indication: DRUG USE FOR UNKNOWN INDICATION
     Route: 048
  13. FENOBRAT [Concomitant]
     Indication: HYPERLIPIDAEMIA
     Route: 048
  14. QUAMATEL [Concomitant]
     Indication: GASTROOESOPHAGEAL REFLUX DISEASE
     Route: 048
  15. RABEPRAZOLE SODIUM [Concomitant]
     Indication: GASTROOESOPHAGEAL REFLUX DISEASE
     Route: 048
  16. PLENDIL [Concomitant]
     Indication: HYPERTENSION
     Route: 048
  17. TALLITON [Concomitant]
     Indication: HYPERTENSION
     Route: 048
  18. MICARDIS HCT [Concomitant]
     Indication: HYPERTENSION
     Route: 048
  19. PLAVIX [Suspect]
     Indication: TRANSIENT ISCHAEMIC ATTACK
     Route: 048

REACTIONS (2)
  - ATRIAL FIBRILLATION [None]
  - DRUG INTERACTION [None]
